FAERS Safety Report 10071487 (Version 2)
Quarter: 2014Q2

REPORT INFORMATION
  Report Type: Report from Study
  Country: US (occurrence: US)
  Receive Date: 20140410
  Receipt Date: 20140508
  Transmission Date: 20141212
  Serious: Yes (Hospitalization)
  Sender: FDA-Public Use
  Company Number: US-BAXTER-2014BAX017094

PATIENT
  Age: 62 Year
  Sex: Female

DRUGS (1)
  1. ARALAST NP [Suspect]
     Indication: PRODUCT USED FOR UNKNOWN INDICATION
     Route: 042

REACTIONS (4)
  - Convulsion [Recovering/Resolving]
  - Device issue [Not Recovered/Not Resolved]
  - Infection [Not Recovered/Not Resolved]
  - Pulmonary oedema [Not Recovered/Not Resolved]
